FAERS Safety Report 7345739-3 (Version None)
Quarter: 2011Q1

REPORT INFORMATION
  Report Type: 
  Country: None (occurrence: None)
  Receive Date: 20110311
  Receipt Date: 20110302
  Transmission Date: 20110831
  Serious: Yes (Other)
  Sender: FDA-Public Use
  Company Number: NL-AMGEN-NLDSP2011005162

PATIENT
  Age: 62 Year
  Sex: Female
  Weight: 130 kg

DRUGS (15)
  1. ACENOCOUMAROL [Concomitant]
     Dosage: 1 MG, UNK
  2. LEVOCETIRIZINE DIHYDROCHLORIDE [Concomitant]
     Dosage: 5 MG, 1X/DAY
  3. TRAMADOL HYDROCHLORIDE AND ACETAMINOPHEN [Concomitant]
     Dosage: UNK
  4. AMIODARONE [Concomitant]
     Dosage: 200 MG, 1X/DAY
  5. FUROSEMIDE [Concomitant]
     Dosage: 40 MG, 1X/DAY
  6. TRIAMCINOLONE [Concomitant]
     Dosage: 1 MG, 1X/DAY
  7. LOSARTAN POTASSIUM [Concomitant]
     Dosage: 50 MG, 1X/DAY
  8. METOPROLOL TARTRATE [Concomitant]
     Dosage: 100 MG, 1X/DAY
  9. ENBREL [Suspect]
     Indication: PSORIASIS
     Dosage: 50 MG, 2X/WEEK
     Dates: start: 20101105, end: 20101201
  10. LIPITOR [Concomitant]
     Dosage: 40 MG, 1X/DAY
  11. ENBREL [Suspect]
     Dosage: 50 MG, 2 TIMES/WK
  12. ACTONEL [Concomitant]
     Dosage: 35 MG, WEEKLY
  13. FEXOFENADINE [Concomitant]
     Dosage: UNK
  14. CUTIVATE [Concomitant]
     Dosage: UNK
  15. METFORMINE ^MERCK^                   /00082701/ [Concomitant]
     Dosage: 500 MG, 4X/DAY

REACTIONS (4)
  - RIB FRACTURE [None]
  - FALL [None]
  - SKELETAL INJURY [None]
  - INFLUENZA [None]
